FAERS Safety Report 6653397-6 (Version None)
Quarter: 2010Q1

REPORT INFORMATION
  Report Type: 
  Country: None (occurrence: None)
  Receive Date: 20100326
  Receipt Date: 20100323
  Transmission Date: 20100710
  Serious: Yes (Hospitalization)
  Sender: FDA-Public Use
  Company Number: IT-ROCHE-692855

PATIENT
  Sex: Female

DRUGS (1)
  1. AVASTIN [Suspect]
     Indication: OVARIAN CANCER
     Dosage: FREQUENCY: CYCLE
     Route: 042
     Dates: start: 20100303, end: 20100303

REACTIONS (2)
  - ABDOMINAL PAIN [None]
  - ERYTHEMA [None]
